FAERS Safety Report 6233343-X (Version None)
Quarter: 2009Q2

REPORT INFORMATION
  Report Type: 
  Country: None (occurrence: None)
  Receive Date: 20090612
  Receipt Date: 20090603
  Transmission Date: 20091009
  Serious: Yes (Death, Other)
  Sender: FDA-Public Use
  Company Number: 2009AL003657

PATIENT
  Age: 28 Year
  Sex: Male

DRUGS (3)
  1. OXAZEPAM [Suspect]
  2. DIAZEPAM [Suspect]
  3. ALPRAZOLAM [Suspect]

REACTIONS (2)
  - ACCIDENTAL EXPOSURE [None]
  - DRUG TOXICITY [None]
